FAERS Safety Report 21491443 (Version 1)
Quarter: 2022Q4

REPORT INFORMATION
  Report Type: Report from Study
  Country: CO (occurrence: CO)
  Receive Date: 20221021
  Receipt Date: 20221021
  Transmission Date: 20230113
  Serious: Yes (Hospitalization, Other)
  Sender: FDA-Public Use
  Company Number: CO-AMGEN-COLSL2022139463

PATIENT
  Age: 68 Year
  Sex: Female

DRUGS (3)
  1. VECTIBIX [Suspect]
     Active Substance: PANITUMUMAB
     Indication: Colorectal cancer
     Dosage: 100 MILLIGRAM, Q2WK
     Route: 065
     Dates: start: 20220617
  2. VECTIBIX [Suspect]
     Active Substance: PANITUMUMAB
     Dosage: 350 MILLIGRAM, Q2WK
     Route: 065
     Dates: start: 20220707
  3. VECTIBIX [Suspect]
     Active Substance: PANITUMUMAB
     Dosage: 100 MILLIGRAM, Q2WK
     Route: 065

REACTIONS (12)
  - Hypotension [Not Recovered/Not Resolved]
  - Pain [Recovered/Resolved]
  - Weight decreased [Recovered/Resolved]
  - Vomiting [Recovered/Resolved]
  - Asthenia [Recovered/Resolved]
  - Colostomy [Recovered/Resolved]
  - Oral disorder [Recovered/Resolved]
  - Syncope [Recovered/Resolved]
  - Pruritus [Not Recovered/Not Resolved]
  - Malaise [Unknown]
  - Discomfort [Recovering/Resolving]
  - Haemoglobin decreased [Not Recovered/Not Resolved]

NARRATIVE: CASE EVENT DATE: 20220101
